FAERS Safety Report 5609838-6 (Version None)
Quarter: 2008Q1

REPORT INFORMATION
  Report Type: 
  Country: None (occurrence: None)
  Receive Date: 20080131
  Receipt Date: 20070927
  Transmission Date: 20080703
  Serious: No
  Sender: FDA-Public Use
  Company Number: US-BAYER-200713619BWH

PATIENT
  Age: 40 Year
  Sex: Male
  Weight: 91 kg

DRUGS (9)
  1. NEXAVAR [Suspect]
     Indication: RENAL CELL CARCINOMA
     Dosage: TOTAL DAILY DOSE: 800 MG  UNIT DOSE: 200 MG
     Route: 048
     Dates: start: 20070831
  2. ZOLOFT [Concomitant]
     Indication: DEPRESSION
     Dosage: TOTAL DAILY DOSE: 250 MG  UNIT DOSE: 250 MG
  3. MORPHINE [Concomitant]
     Indication: PAIN
     Dosage: TOTAL DAILY DOSE: 180 MG  UNIT DOSE: 90 MG
  4. MORPHINE [Concomitant]
     Indication: BREAKTHROUGH PAIN
  5. LOVENOX [Concomitant]
     Indication: THROMBOSIS PROPHYLAXIS
     Dosage: TOTAL DAILY DOSE: 150 MG
  6. XANAX [Concomitant]
     Indication: ANXIETY
  7. PRILOSEC [Concomitant]
     Indication: DYSPEPSIA
  8. PERI-COLACE [Concomitant]
     Indication: CONSTIPATION PROPHYLAXIS
  9. SENOKOT [Concomitant]
     Indication: CONSTIPATION PROPHYLAXIS

REACTIONS (4)
  - ANOREXIA [None]
  - PAIN OF SKIN [None]
  - PRURITUS [None]
  - RASH [None]
